FAERS Safety Report 17415203 (Version 6)
Quarter: 2020Q2

REPORT INFORMATION
  Report Type: Report from Study
  Country: US (occurrence: US)
  Receive Date: 20200213
  Receipt Date: 20200601
  Transmission Date: 20200713
  Serious: Yes (Other)
  Sender: FDA-Public Use
  Company Number: US-PFIZER INC-2020005170

PATIENT
  Age: 55 Year
  Sex: Female

DRUGS (5)
  1. IBRANCE [Suspect]
     Active Substance: PALBOCICLIB
     Dosage: 125 MG, CYCLIC (DAILY; OFF PALBOCICLIB FOR 6 DAYS INSTEAD OF 7 DAYS)
     Route: 048
  2. IBRANCE [Suspect]
     Active Substance: PALBOCICLIB
     Indication: BREAST CANCER METASTATIC
     Dosage: 125 MG, CYCLIC (Q (ONCE) DAY 21 DAYS ON/ 7 DAYS OFF)
     Route: 048
     Dates: start: 20191121, end: 202003
  3. IBRANCE [Suspect]
     Active Substance: PALBOCICLIB
     Dosage: 100 MG, CYCLIC (21 DAYS ON THEN 7 DAYS OFF)
     Route: 048
     Dates: start: 20200311, end: 202003
  4. IBRANCE [Suspect]
     Active Substance: PALBOCICLIB
     Dosage: 75 MG, CYCLIC [75 MG DAILY FOR 21 DAYS ON THEN 7 DAYS OFF]
     Route: 048
     Dates: start: 20200403, end: 202005
  5. ANASTROZOLE. [Concomitant]
     Active Substance: ANASTROZOLE
     Indication: BREAST CANCER METASTATIC
     Dosage: 1 MG, 1X/DAY
     Dates: start: 20191120

REACTIONS (12)
  - Headache [Recovered/Resolved]
  - Vomiting [Recovered/Resolved]
  - Dysuria [Recovered/Resolved]
  - Hepatic enzyme increased [Recovering/Resolving]
  - Burning sensation [Recovering/Resolving]
  - Pollakiuria [Recovering/Resolving]
  - Abdominal pain lower [Recovered/Resolved]
  - Micturition urgency [Recovering/Resolving]
  - Hypokalaemia [Recovered/Resolved]
  - Dizziness [Unknown]
  - Liver function test increased [Recovering/Resolving]
  - Off label use [Unknown]

NARRATIVE: CASE EVENT DATE: 20191219
